FAERS Safety Report 6058050-8 (Version None)
Quarter: 2009Q1

REPORT INFORMATION
  Report Type: 
  Country: None (occurrence: None)
  Receive Date: 20090127
  Receipt Date: 20090112
  Transmission Date: 20090719
  Serious: Yes (Hospitalization)
  Sender: FDA-Public Use
  Company Number: 230543K09USA

PATIENT
  Age: 49 Year
  Sex: Female
  Weight: 59 kg

DRUGS (3)
  1. REBIF [Suspect]
     Indication: MULTIPLE SCLEROSIS
     Dosage: 44 MCG, 3 IN 1 WEEKS, SUBCUTANEOUS
     Route: 058
     Dates: start: 20071210, end: 20081101
  2. CYMBALTA [Concomitant]
  3. PROVIGIL [Concomitant]

REACTIONS (3)
  - ANAEMIA [None]
  - BILE DUCT OBSTRUCTION [None]
  - PANCREATITIS [None]
